FAERS Safety Report 8883102 (Version 2)
Quarter: 2013Q1

REPORT INFORMATION
  Report Type: Spontaneous
  Country: JP (occurrence: JP)
  Receive Date: 20121102
  Receipt Date: 20130228
  Transmission Date: 20140127
  Serious: Yes (Other)
  Sender: FDA-Public Use
  Company Number: PHHY2012JP098959

PATIENT
  Age: 58 Year
  Sex: Female

DRUGS (1)
  1. ZOMETA [Suspect]
     Indication: BREAST CANCER METASTATIC
     Dosage: EVERY FOUR WEEKS
     Route: 041
     Dates: start: 20100316

REACTIONS (2)
  - Fall [Unknown]
  - Ankle fracture [Unknown]
